FAERS Safety Report 22379224 (Version 3)
Quarter: 2024Q4

REPORT INFORMATION
  Report Type: Spontaneous
  Country: GR (occurrence: GR)
  Receive Date: 20230529
  Receipt Date: 20241212
  Transmission Date: 20250115
  Serious: Yes (Disabling, Other)
  Sender: RANBAXY
  Company Number: GR-SUN PHARMACEUTICAL INDUSTRIES LTD-2023RR-390558

PATIENT
  Age: 73 Year
  Sex: Male
  Weight: 104 kg

DRUGS (4)
  1. EZETIMIBE [Suspect]
     Active Substance: EZETIMIBE
     Indication: Coronary artery disease
     Dosage: UNK
     Route: 048
  2. ROSUVASTATIN [Suspect]
     Active Substance: ROSUVASTATIN
     Indication: Coronary artery disease
     Dosage: 10 MILLIGRAM
     Route: 048
     Dates: start: 1996
  3. COMIRNATY NOS [Suspect]
     Active Substance: COVID-19 VACCINE
     Indication: Product used for unknown indication
     Dosage: SECOND DOSE
     Route: 065
     Dates: start: 20210616
  4. ATORVASTATIN [Suspect]
     Active Substance: ATORVASTATIN
     Indication: Coronary artery disease
     Dosage: UNK
     Route: 048
     Dates: start: 1996

REACTIONS (4)
  - Myopathy [Not Recovered/Not Resolved]
  - Myopathy [Unknown]
  - Gait disturbance [Recovered/Resolved]
  - Gait disturbance [Recovered/Resolved]

NARRATIVE: CASE EVENT DATE: 20210601
